FAERS Safety Report 5266729-0 (Version None)
Quarter: 2007Q1

REPORT INFORMATION
  Report Type: 
  Country: None (occurrence: None)
  Receive Date: 20070312
  Receipt Date: 20070305
  Transmission Date: 20070707
  Serious: Yes (Death)
  Sender: FDA-Public Use
  Company Number: 2007AL000900

PATIENT
  Age: 34 Year
  Sex: Male

DRUGS (4)
  1. FLUOXETINE [Suspect]
     Indication: DEPRESSION
     Dates: start: 20000101
  2. AMISULPRIDE [Concomitant]
  3. ACETAMINOPHEN [Concomitant]
  4. CLOZAPINE [Concomitant]

REACTIONS (4)
  - DRUG TOXICITY [None]
  - MULTIPLE DRUG OVERDOSE [None]
  - OVERDOSE [None]
  - PULMONARY OEDEMA [None]
